FAERS Safety Report 9686851 (Version 2)
Quarter: 2013Q4

REPORT INFORMATION
  Report Type: Spontaneous
  Country: US (occurrence: US)
  Receive Date: 20131113
  Receipt Date: 20131203
  Transmission Date: 20140711
  Serious: No
  Sender: FDA-Public Use
  Company Number: US-JNJFOC-20131101924

PATIENT
  Sex: Female
  Weight: 83.92 kg

DRUGS (1)
  1. DURAGESIC [Suspect]
     Indication: PAIN
     Route: 062
     Dates: start: 2010

REACTIONS (2)
  - Product quality issue [Recovered/Resolved]
  - Wrong technique in drug usage process [Not Recovered/Not Resolved]
